FAERS Safety Report 25686167 (Version 1)
Quarter: 2025Q3

REPORT INFORMATION
  Report Type: Spontaneous
  Country: US (occurrence: US)
  Receive Date: 20250815
  Receipt Date: 20250815
  Transmission Date: 20251021
  Serious: Yes (Other)
  Sender: GE HEALTHCARE
  Company Number: US-GE HEALTHCARE-2025CSU010705

PATIENT
  Age: 79 Year
  Sex: Female
  Weight: 53 kg

DRUGS (1)
  1. VIZAMYL [Suspect]
     Active Substance: FLUTEMETAMOL F-18
     Indication: Positron emission tomogram
     Route: 042
     Dates: start: 20250805

REACTIONS (5)
  - Hypertension [Unknown]
  - Back pain [Unknown]
  - Tremor [Unknown]
  - Hypoaesthesia [Unknown]
  - Body temperature decreased [Unknown]

NARRATIVE: CASE EVENT DATE: 20250805
